FAERS Safety Report 15280085 (Version 2)
Quarter: 2018Q4

REPORT INFORMATION
  Report Type: Report from Study
  Country: IT (occurrence: IT)
  Receive Date: 20180815
  Receipt Date: 20181001
  Transmission Date: 20190204
  Serious: Yes (Hospitalization)
  Sender: FDA-Public Use
  Company Number: IT-PFIZER INC-2018324340

PATIENT
  Age: 43 Year
  Sex: Female

DRUGS (2)
  1. XANAX [Suspect]
     Active Substance: ALPRAZOLAM
     Dosage: 40 MG, SINGLE
     Route: 048
     Dates: start: 20180702, end: 20180702
  2. LIDOCAINE HYDROCHLORIDE. [Suspect]
     Active Substance: LIDOCAINE HYDROCHLORIDE
     Dosage: 500 MG, SINGLE
     Route: 048
     Dates: start: 20180702, end: 20180702

REACTIONS (4)
  - Respiratory alkalosis [Unknown]
  - Sopor [Unknown]
  - Metabolic acidosis [Unknown]
  - Drug abuse [Unknown]

NARRATIVE: CASE EVENT DATE: 20180702
